FAERS Safety Report 5234027-7 (Version None)
Quarter: 2007Q1

REPORT INFORMATION
  Report Type: 
  Country: None (occurrence: None)
  Receive Date: 20070208
  Receipt Date: 20070202
  Transmission Date: 20070707
  Serious: Yes (Death, Other)
  Sender: FDA-Public Use
  Company Number: US-BRISTOL-MYERS SQUIBB COMPANY-13668538

PATIENT
  Age: 30 Year
  Sex: Female
  Weight: 44 kg

DRUGS (6)
  1. STAVUDINE [Suspect]
     Indication: HIV INFECTION
  2. AMPHOTERICIN B [Suspect]
  3. TENOFOVIR [Suspect]
     Indication: HIV INFECTION
  4. RITONAVIR [Suspect]
     Indication: HIV INFECTION
  5. LOPINAVIR [Suspect]
     Indication: HIV INFECTION
  6. LAMIVUDINE [Suspect]
     Indication: HIV INFECTION

REACTIONS (2)
  - DEATH [None]
  - HYPOKALAEMIA [None]
